FAERS Safety Report 15535969 (Version 3)
Quarter: 2018Q4

REPORT INFORMATION
  Report Type: Spontaneous
  Country: AU (occurrence: AU)
  Receive Date: 20181022
  Receipt Date: 20181102
  Transmission Date: 20190205
  Serious: Yes (Disabling)
  Sender: FDA-Public Use
  Company Number: AU-IPSEN BIOPHARMACEUTICALS, INC.-2018-15874

PATIENT
  Age: 71 Year
  Sex: Female

DRUGS (1)
  1. DYSPORT [Suspect]
     Active Substance: ABOBOTULINUMTOXINA
     Indication: TORTICOLLIS
     Dosage: 1000 UNITS SITE: NECK MUSCLE.
     Route: 030
     Dates: start: 20180705, end: 20180705

REACTIONS (11)
  - Muscular weakness [Recovering/Resolving]
  - Dry mouth [Recovering/Resolving]
  - Intentional product use issue [Unknown]
  - Dizziness [Recovering/Resolving]
  - Hypersensitivity [Recovering/Resolving]
  - Throat tightness [Recovering/Resolving]
  - Rhinorrhoea [Recovering/Resolving]
  - Nausea [Recovering/Resolving]
  - Atrial fibrillation [Recovering/Resolving]
  - Sinusitis [Recovering/Resolving]
  - Overdose [Unknown]

NARRATIVE: CASE EVENT DATE: 20180705
